FAERS Safety Report 6988869-8 (Version None)
Quarter: 2010Q3

REPORT INFORMATION
  Report Type: 
  Country: None (occurrence: None)
  Receive Date: 20100916
  Receipt Date: 20100913
  Transmission Date: 20110219
  Serious: Yes (Death, Other)
  Sender: FDA-Public Use
  Company Number: CA-ASTRAZENECA-2010SE34167

PATIENT
  Age: 78 Year
  Sex: Female

DRUGS (8)
  1. CRESTOR [Suspect]
     Route: 048
     Dates: start: 20100501, end: 20100714
  2. COUMADIN [Concomitant]
     Route: 065
  3. LAMISIL [Concomitant]
  4. NORVASC [Concomitant]
  5. METOPROLOL TARTRATE [Concomitant]
  6. ALDACTAZIDE [Concomitant]
     Dosage: 25/25 4 OD
  7. PARRET [Concomitant]
  8. PRINIVIL [Concomitant]

REACTIONS (5)
  - CARDIOGENIC SHOCK [None]
  - DECREASED APPETITE [None]
  - FATIGUE [None]
  - MYOCARDIAL INFARCTION [None]
  - PANCYTOPENIA [None]
